FAERS Safety Report 18394599 (Version 1)
Quarter: 2020Q4

REPORT INFORMATION
  Report Type: Spontaneous
  Country: US (occurrence: US)
  Receive Date: 20201016
  Receipt Date: 20201016
  Transmission Date: 20210114
  Serious: No
  Sender: FDA-Public Use
  Company Number: US-TEVA-2020-US-1837945

PATIENT
  Sex: Female

DRUGS (1)
  1. BUPRENORPHINE TEVA [Suspect]
     Active Substance: BUPRENORPHINE
     Indication: CANCER PAIN
     Dosage: 10 MICROGRAM PER HOUR
     Route: 062
     Dates: start: 2019

REACTIONS (11)
  - Auditory disorder [Unknown]
  - Fatigue [Unknown]
  - Application site burn [Unknown]
  - Dizziness [Unknown]
  - Dry mouth [Unknown]
  - Miosis [Unknown]
  - Feeling abnormal [Unknown]
  - Dysphonia [Unknown]
  - Application site pruritus [Unknown]
  - Application site rash [Unknown]
  - Drug delivery system issue [Unknown]

NARRATIVE: CASE EVENT DATE: 202007
